FAERS Safety Report 24601594 (Version 1)
Quarter: 2024Q4

REPORT INFORMATION
  Report Type: Spontaneous
  Country: CN (occurrence: CN)
  Receive Date: 20241111
  Receipt Date: 20241111
  Transmission Date: 20250115
  Serious: Yes (Other)
  Sender: DR REDDYS
  Company Number: None

PATIENT
  Age: 42 Year
  Sex: Male
  Weight: 65 kg

DRUGS (1)
  1. OLANZAPINE [Suspect]
     Active Substance: OLANZAPINE
     Indication: Mentally late developer
     Dosage: 10MG,QD
     Route: 048
     Dates: start: 20240929, end: 20241011

REACTIONS (2)
  - Hypothyroidism [Recovering/Resolving]
  - Lipids increased [Recovering/Resolving]

NARRATIVE: CASE EVENT DATE: 20241009
